FAERS Safety Report 5933044-9 (Version None)
Quarter: 2008Q4

REPORT INFORMATION
  Report Type: 
  Country: None (occurrence: None)
  Receive Date: 20081028
  Receipt Date: 20081020
  Transmission Date: 20090506
  Serious: Yes (Death)
  Sender: FDA-Public Use
  Company Number: US-GILEAD-2008-0018464

PATIENT
  Sex: Female
  Weight: 82.174 kg

DRUGS (14)
  1. LETAIRIS [Suspect]
     Indication: COR PULMONALE CHRONIC
     Route: 048
     Dates: start: 20080519, end: 20081016
  2. VIAGRA [Concomitant]
  3. LASIX [Concomitant]
  4. INNOPRAN [Concomitant]
  5. COREG [Concomitant]
  6. SPIRIVA [Concomitant]
  7. FOSAMAX [Concomitant]
  8. MEDROL [Concomitant]
  9. BENADRYL [Concomitant]
  10. DARVOCET [Concomitant]
  11. MAGNESIUM SULFATE [Concomitant]
  12. CALCIUM [Concomitant]
  13. POTASSIUM CHLORIDE [Concomitant]
  14. MULTIVITAMIN [Concomitant]

REACTIONS (3)
  - AURICULAR SWELLING [None]
  - DEATH [None]
  - EAR DISCOMFORT [None]
